FAERS Safety Report 25352139 (Version 1)
Quarter: 2025Q2

REPORT INFORMATION
  Report Type: Spontaneous
  Country: US (occurrence: None)
  Receive Date: 20250522
  Receipt Date: 20250522
  Transmission Date: 20250717
  Serious: Yes (Other)
  Sender: FDA-CTU
  Company Number: None

PATIENT
  Age: 75 Year
  Sex: Female
  Weight: 83.25 kg

DRUGS (1)
  1. MOUNJARO [Suspect]
     Active Substance: TIRZEPATIDE
     Route: 030

REACTIONS (2)
  - Product prescribing issue [None]
  - Alopecia [None]

NARRATIVE: CASE EVENT DATE: 20250505
